FAERS Safety Report 5717088-8 (Version None)
Quarter: 2008Q2

REPORT INFORMATION
  Report Type: 
  Country: None (occurrence: None)
  Receive Date: 20080423
  Receipt Date: 20080413
  Transmission Date: 20081010
  Serious: Yes (Other)
  Sender: FDA-Public Use
  Company Number: 2008009528

PATIENT
  Sex: Male

DRUGS (1)
  1. BENADRYL [Suspect]
     Dosage: UNSPECIFIED EVERY NIGHT FOR 1 YEAR, ORAL
     Route: 048

REACTIONS (1)
  - ANXIETY [None]
